FAERS Safety Report 19096538 (Version 3)
Quarter: 2021Q3

REPORT INFORMATION
  Report Type: Report from Study
  Country: MX (occurrence: MX)
  Receive Date: 20210406
  Receipt Date: 20210728
  Transmission Date: 20211014
  Serious: Yes (Other)
  Sender: FDA-Public Use
  Company Number: NVSC2021MX075019

PATIENT
  Age: 73 Year
  Sex: Male
  Weight: 76 kg

DRUGS (1)
  1. EXFORGE HCT [Suspect]
     Active Substance: AMLODIPINE BESYLATE\HYDROCHLOROTHIAZIDE\VALSARTAN
     Indication: HYPERTENSION
     Dosage: 1 DF, QD
     Route: 065

REACTIONS (4)
  - Skin cancer [Recovering/Resolving]
  - Eye disorder [Unknown]
  - Headache [Unknown]
  - Nasal cavity cancer [Recovering/Resolving]

NARRATIVE: CASE EVENT DATE: 20201216
